FAERS Safety Report 4704350-0 (Version None)
Quarter: 2005Q2

REPORT INFORMATION
  Report Type: 
  Country: None (occurrence: None)
  Receive Date: 20050628
  Receipt Date: 20050613
  Transmission Date: 20051028
  Serious: Yes (Congenital Anomaly)
  Sender: FDA-Public Use
  Company Number: 2005-0008410

PATIENT
  Age: 30 Year
  Sex: Female
  Weight: 68 kg

DRUGS (5)
  1. VIREAD [Suspect]
     Indication: HIV INFECTION
     Dosage: 300 MG 1 IN 1 D ORAL
     Route: 048
     Dates: start: 20040806
  2. EMTRIVA [Suspect]
     Indication: HIV INFECTION
     Dosage: 200 MG 1 IN 1 D ORAL
     Route: 048
     Dates: start: 20040806
  3. NORVIR [Suspect]
     Dosage: HIV
  4. NORVIR [Concomitant]
  5. ATAZANAVIR (ATAZANAVIR) [Suspect]
     Indication: HIV INFECTION
     Dosage: 300 MG 1 IN 1 D ORAL
     Route: 048
     Dates: start: 20040806

REACTIONS (1)
  - DRUG EXPOSURE DURING PREGNANCY [None]
